FAERS Safety Report 7550391-8 (Version None)
Quarter: 2011Q2

REPORT INFORMATION
  Report Type: 
  Country: None (occurrence: None)
  Receive Date: 20110615
  Receipt Date: 20110609
  Transmission Date: 20111010
  Serious: Yes (Hospitalization)
  Sender: FDA-Public Use
  Company Number: US-B.I. PHARMACEUTICALS,INC./RIDGEFIELD-2011-BP-13279BP

PATIENT
  Age: 82 Year
  Sex: Male
  Weight: 52.16 kg

DRUGS (6)
  1. PROTONIX [Concomitant]
     Dosage: 40 MG
  2. PRADAXA [Suspect]
     Indication: ATRIAL FIBRILLATION
     Dosage: 300 MG
     Dates: start: 20110401, end: 20110513
  3. ZOCOR [Concomitant]
     Dosage: 20 MG
  4. DIOVAN HCT [Concomitant]
  5. AMLODIPINE [Concomitant]
     Dosage: 10 MG
     Route: 048
  6. LOPRESSOR [Concomitant]
     Dosage: 50 MG

REACTIONS (2)
  - GASTROINTESTINAL HAEMORRHAGE [None]
  - GASTRIC ULCER [None]
